FAERS Safety Report 8532581-0 (Version None)
Quarter: 2012Q3

REPORT INFORMATION
  Report Type: 
  Country: None (occurrence: None)
  Receive Date: 20120724
  Receipt Date: 20120718
  Transmission Date: 20120928
  Serious: No
  Sender: FDA-Public Use
  Company Number: US-PFIZER INC-2012174144

PATIENT
  Sex: Female

DRUGS (2)
  1. VITAMIN B6 [Concomitant]
     Dosage: UNK
  2. LYRICA [Suspect]
     Dosage: 225 MG, 1X/DAY (TAKES 3 X 75MG QD)

REACTIONS (3)
  - PAIN IN EXTREMITY [None]
  - PLATELET COUNT DECREASED [None]
  - NEUROPATHY PERIPHERAL [None]
